FAERS Safety Report 17711683 (Version 3)
Quarter: 2020Q2

REPORT INFORMATION
  Report Type: Spontaneous
  Country: IT (occurrence: IT)
  Receive Date: 20200427
  Receipt Date: 20200511
  Transmission Date: 20200714
  Serious: Yes (Other)
  Sender: FDA-Public Use
  Company Number: IT-PFIZER INC-2020154445

PATIENT
  Age: 76 Year
  Sex: Male

DRUGS (1)
  1. PANTOPRAZOLE [Suspect]
     Active Substance: PANTOPRAZOLE
     Dosage: 20 MILLIGRAM, UNK
     Route: 065

REACTIONS (4)
  - Muscle hypertrophy [Unknown]
  - Breast tenderness [Unknown]
  - Myalgia [Unknown]
  - Breast enlargement [Unknown]
